FAERS Safety Report 24399293 (Version 1)
Quarter: 2024Q4

REPORT INFORMATION
  Report Type: Spontaneous
  Country: US (occurrence: US)
  Receive Date: 20241004
  Receipt Date: 20241004
  Transmission Date: 20250115
  Serious: No
  Sender: MERCK
  Company Number: US-009507513-2410USA000458

PATIENT
  Age: 66 Year
  Sex: Male

DRUGS (5)
  1. KEYTRUDA [Suspect]
     Active Substance: PEMBROLIZUMAB
     Indication: Lung cancer metastatic
     Dosage: EVERY 6 WEEKS
     Route: 042
     Dates: start: 202212
  2. ZOMETA [Concomitant]
     Active Substance: ZOLEDRONIC ACID
  3. CALCIUM CARBONATE [Concomitant]
     Active Substance: CALCIUM CARBONATE
  4. MAGNESIUM [Concomitant]
     Active Substance: MAGNESIUM
  5. GENTIAN VIOLET [Concomitant]
     Active Substance: GENTIAN VIOLET

REACTIONS (4)
  - Vitiligo [Recovered/Resolved]
  - Genital lesion [Not Recovered/Not Resolved]
  - Skin lesion [Recovered/Resolved]
  - Impaired healing [Not Recovered/Not Resolved]

NARRATIVE: CASE EVENT DATE: 20240201
